FAERS Safety Report 14525903 (Version 3)
Quarter: 2018Q4

REPORT INFORMATION
  Report Type: Spontaneous
  Country: US (occurrence: US)
  Receive Date: 20180213
  Receipt Date: 20181010
  Transmission Date: 20190204
  Serious: Yes (Hospitalization, Other)
  Sender: FDA-Public Use
  Company Number: US-INCYTE CORPORATION-2018IN001224

PATIENT

DRUGS (2)
  1. JAKAFI [Suspect]
     Active Substance: RUXOLITINIB
     Dosage: 5 MG, BID
     Route: 048
     Dates: start: 20170313
  2. JAKAFI [Suspect]
     Active Substance: RUXOLITINIB
     Indication: CHRONIC GRAFT VERSUS HOST DISEASE
     Dosage: 5 MG, BID
     Route: 048
     Dates: start: 201703

REACTIONS (16)
  - Vomiting [Unknown]
  - Abdominal pain [Unknown]
  - Dry eye [Unknown]
  - Migraine [Unknown]
  - Nausea [Unknown]
  - Oral mucosal eruption [Unknown]
  - Pain [Unknown]
  - Lung infection [Unknown]
  - Adrenal insufficiency [Unknown]
  - White blood cell count increased [Unknown]
  - Myelodysplastic syndrome [Unknown]
  - Immunodeficiency [Unknown]
  - Rash [Unknown]
  - Graft versus host disease [Unknown]
  - Hyperkalaemia [Unknown]
  - Off label use [Unknown]
